FAERS Safety Report 8281507-6 (Version None)
Quarter: 2012Q2

REPORT INFORMATION
  Report Type: 
  Country: None (occurrence: None)
  Receive Date: 20120413
  Receipt Date: 20120411
  Transmission Date: 20120825
  Serious: Yes (Other)
  Sender: FDA-Public Use
  Company Number: US-PFIZER INC-2012090667

PATIENT
  Sex: Female
  Weight: 120.18 kg

DRUGS (14)
  1. LOSARTAN [Concomitant]
     Indication: HYPERTENSION
     Dosage: 100 MG, DAILY
  2. ASCORBIC ACID/RETINOL [Concomitant]
     Indication: EYE DISORDER
     Dosage: UNK, DAILY
  3. GLUCOSAMINE SULFATE [Concomitant]
     Indication: ARTHROPATHY
     Dosage: 1000 MG, 2X/DAY
  4. SYNTHROID [Concomitant]
     Indication: HYPOTHYROIDISM
     Dosage: 0.088 MG, DAILY
  5. CALCIUM WITH VITAMIN D [Concomitant]
     Dosage: 1200MG/1000MG, 2X/DAY
  6. HYDROCHLOROTHIAZIDE [Concomitant]
     Indication: HYPERTENSION
     Dosage: 25 MG, DAILY
  7. MULTI-VITAMINS [Concomitant]
     Dosage: UNK
  8. CELEBREX [Suspect]
     Dosage: UNK
     Dates: end: 20110101
  9. VITAMIN B COMPLEX CAP [Concomitant]
     Dosage: UNK, DAILY
  10. CELEBREX [Suspect]
     Indication: OSTEOARTHRITIS
     Dosage: 200 MG, 2X/DAY
     Dates: end: 20110101
  11. ATENOLOL [Concomitant]
     Indication: HYPERTENSION
     Dosage: 50 MG, DAILY
  12. ACETYLSALICYLIC ACID [Concomitant]
     Dosage: 81 MG, DAILY
  13. LOVAZA [Concomitant]
     Dosage: 1200 MG,DAILY
  14. CELEBREX [Suspect]
     Dosage: 200 MG, DAILY

REACTIONS (1)
  - BREAST CANCER STAGE I [None]
